FAERS Safety Report 7332424-7 (Version None)
Quarter: 2011Q1

REPORT INFORMATION
  Report Type: 
  Country: None (occurrence: None)
  Receive Date: 20110304
  Receipt Date: 20110228
  Transmission Date: 20110831
  Serious: Yes (Death)
  Sender: FDA-Public Use
  Company Number: CN-ROCHE-762288

PATIENT
  Sex: Male

DRUGS (3)
  1. CORTICOSTEROID NOS [Concomitant]
     Indication: RENAL TRANSPLANT
  2. MYCOPHENOLATE MOFETIL [Suspect]
     Indication: RENAL TRANSPLANT
     Route: 065
     Dates: start: 20091127
  3. CICLOSPORIN [Concomitant]
     Indication: RENAL TRANSPLANT

REACTIONS (1)
  - DEATH [None]
